FAERS Safety Report 25415680 (Version 7)
Quarter: 2025Q4

REPORT INFORMATION
  Report Type: Spontaneous
  Country: CA (occurrence: CA)
  Receive Date: 20250610
  Receipt Date: 20251107
  Transmission Date: 20260118
  Serious: Yes (Death, Life-Threatening, Hospitalization, Disabling, Other)
  Sender: Haleon PLC
  Company Number: CA-002147023-NVSC2025CA090538

PATIENT
  Age: 43 Year
  Sex: Female
  Weight: 68 kg

DRUGS (256)
  1. VOLTAREN [Suspect]
     Active Substance: DICLOFENAC SODIUM
     Indication: Product used for unknown indication
     Dosage: UNK, Q12H (EMULGEL, 12 HOURLY)
  2. COSENTYX [Suspect]
     Active Substance: SECUKINUMAB
     Indication: Psoriatic arthropathy
     Dosage: UNK, DOSE FORM: SOLUTION FOR INJECTION IN PRE-FILLED PEN
  3. COSENTYX [Suspect]
     Active Substance: SECUKINUMAB
     Indication: Rheumatoid arthritis
     Dosage: UNK, DOSE FORM: SOLUTION FOR INJECTION IN PRE-FILLED PEN
  4. COSENTYX [Suspect]
     Active Substance: SECUKINUMAB
     Dosage: UNK, DOSE FORM: SOLUTION FOR INJECTION IN PRE-FILLED PEN
  5. COSENTYX [Suspect]
     Active Substance: SECUKINUMAB
     Dosage: UNK, DOSE FORM: SOLUTION FOR INJECTION IN PRE-FILLED PEN
  6. COSENTYX [Suspect]
     Active Substance: SECUKINUMAB
     Dosage: UNK, DOSE FORM: SOLUTION FOR INJECTION IN PRE-FILLED PEN
  7. COSENTYX [Suspect]
     Active Substance: SECUKINUMAB
     Dosage: UNK, DOSE FORM: SOLUTION FOR INJECTION IN PRE-FILLED PEN
  8. COSENTYX [Suspect]
     Active Substance: SECUKINUMAB
     Dosage: UNK, DOSE FORM: SOLUTION FOR INJECTION IN PRE-FILLED PEN
  9. DOMPERIDONE MALEATE [Suspect]
     Active Substance: DOMPERIDONE MALEATE
     Indication: Product used for unknown indication
     Dosage: 1 DOSAGE FORM, QD
  10. FOLIC ACID [Suspect]
     Active Substance: FOLIC ACID
     Indication: Rheumatoid arthritis
     Dosage: 25 MG
     Route: 048
  11. FOLIC ACID [Suspect]
     Active Substance: FOLIC ACID
     Dosage: 15 MG
  12. FOLIC ACID [Suspect]
     Active Substance: FOLIC ACID
     Dosage: 1 G
  13. FOLIC ACID [Suspect]
     Active Substance: FOLIC ACID
     Dosage: 500 MG
     Route: 048
  14. FOLIC ACID [Suspect]
     Active Substance: FOLIC ACID
     Dosage: 0.5 MG
     Route: 048
  15. FOLIC ACID [Suspect]
     Active Substance: FOLIC ACID
     Dosage: 5 MG
     Route: 048
  16. FOLIC ACID [Suspect]
     Active Substance: FOLIC ACID
     Dosage: 1 MG
     Route: 048
  17. FOLIC ACID [Suspect]
     Active Substance: FOLIC ACID
     Dosage: 50 MG
  18. FOLIC ACID [Suspect]
     Active Substance: FOLIC ACID
     Dosage: 5 MG
  19. FOLIC ACID [Suspect]
     Active Substance: FOLIC ACID
     Dosage: 5 MG, QD
  20. FOLIC ACID [Suspect]
     Active Substance: FOLIC ACID
     Dosage: 15 MG
     Route: 048
  21. FOLIC ACID [Suspect]
     Active Substance: FOLIC ACID
     Dosage: 5 MG
  22. FOLIC ACID [Suspect]
     Active Substance: FOLIC ACID
     Dosage: 1 MG
  23. METHOTREXATE [Suspect]
     Active Substance: METHOTREXATE
     Indication: Rheumatoid arthritis
     Dosage: 20 MG, QD
  24. METHOTREXATE [Suspect]
     Active Substance: METHOTREXATE
     Indication: Psoriatic arthropathy
  25. OXYCODONE HYDROCHLORIDE [Suspect]
     Active Substance: OXYCODONE HYDROCHLORIDE
     Indication: Product used for unknown indication
     Dosage: UNK
  26. OXYCODONE HYDROCHLORIDE [Suspect]
     Active Substance: OXYCODONE HYDROCHLORIDE
  27. OXYCODONE HYDROCHLORIDE [Suspect]
     Active Substance: OXYCODONE HYDROCHLORIDE
  28. DICLOFENAC SODIUM [Suspect]
     Active Substance: DICLOFENAC SODIUM
     Indication: Product used for unknown indication
     Dosage: UNK
     Route: 058
  29. DICLOFENAC SODIUM [Suspect]
     Active Substance: DICLOFENAC SODIUM
     Dosage: OCULAR USE
  30. DICLOFENAC SODIUM [Suspect]
     Active Substance: DICLOFENAC SODIUM
     Dosage: UNK
     Route: 031
  31. DICLOFENAC SODIUM [Suspect]
     Active Substance: DICLOFENAC SODIUM
     Dosage: OPHTHALMIC
  32. DICLOFENAC SODIUM [Suspect]
     Active Substance: DICLOFENAC SODIUM
     Dosage: UNK
  33. DICLOFENAC SODIUM [Suspect]
     Active Substance: DICLOFENAC SODIUM
     Dosage: UNK, ROA: SUBCUTANEOUS
  34. DICLOFENAC SODIUM [Suspect]
     Active Substance: DICLOFENAC SODIUM
     Dosage: UNK
  35. DICLOFENAC SODIUM [Suspect]
     Active Substance: DICLOFENAC SODIUM
     Dosage: UNK
  36. HYDROCORTISONE ACETATE [Suspect]
     Active Substance: HYDROCORTISONE ACETATE
     Indication: Product used for unknown indication
  37. HYDROCORTISONE ACETATE [Suspect]
     Active Substance: HYDROCORTISONE ACETATE
  38. HYDROCORTISONE ACETATE [Suspect]
     Active Substance: HYDROCORTISONE ACETATE
  39. HYDROCORTISONE ACETATE [Suspect]
     Active Substance: HYDROCORTISONE ACETATE
  40. HYDROCORTISONE ACETATE [Suspect]
     Active Substance: HYDROCORTISONE ACETATE
  41. HYDROCORTISONE ACETATE [Suspect]
     Active Substance: HYDROCORTISONE ACETATE
  42. DICLOFENAC POTASSIUM [Suspect]
     Active Substance: DICLOFENAC POTASSIUM
     Indication: Product used for unknown indication
     Dosage: UNK
  43. DICLOFENAC POTASSIUM [Suspect]
     Active Substance: DICLOFENAC POTASSIUM
     Dosage: UNK
  44. DOMPERIDONE MALEATE [Suspect]
     Active Substance: DOMPERIDONE MALEATE
     Indication: Product used for unknown indication
     Dosage: 1 DOSAGE FORM, QD
  45. QUETIAPINE FUMARATE [Suspect]
     Active Substance: QUETIAPINE FUMARATE
     Indication: Product used for unknown indication
     Dosage: UNK
  46. QUETIAPINE FUMARATE [Suspect]
     Active Substance: QUETIAPINE FUMARATE
     Dosage: UNK
  47. QUETIAPINE FUMARATE [Suspect]
     Active Substance: QUETIAPINE FUMARATE
     Dosage: UNK
     Route: 048
  48. QUETIAPINE FUMARATE [Suspect]
     Active Substance: QUETIAPINE FUMARATE
     Dosage: UNK
  49. QUETIAPINE FUMARATE [Suspect]
     Active Substance: QUETIAPINE FUMARATE
     Dosage: UNK
  50. QUETIAPINE FUMARATE [Suspect]
     Active Substance: QUETIAPINE FUMARATE
     Dosage: UNK
  51. RITUXIMAB [Suspect]
     Active Substance: RITUXIMAB
     Indication: Rheumatoid arthritis
     Dosage: UNK
     Route: 042
  52. RITUXIMAB [Suspect]
     Active Substance: RITUXIMAB
     Dosage: UNK
     Route: 042
  53. RITUXIMAB [Suspect]
     Active Substance: RITUXIMAB
     Dosage: UNK
     Route: 016
  54. RITUXIMAB [Suspect]
     Active Substance: RITUXIMAB
     Dosage: UNK, INTRAVESICAL
  55. RITUXIMAB [Suspect]
     Active Substance: RITUXIMAB
     Dosage: UNK, INTRACARDIAC
  56. RITUXIMAB [Suspect]
     Active Substance: RITUXIMAB
     Dosage: UNK, INTRACARDIAC
  57. RITUXIMAB [Suspect]
     Active Substance: RITUXIMAB
     Dosage: UNK
     Route: 016
  58. RITUXIMAB [Suspect]
     Active Substance: RITUXIMAB
     Dosage: UNK, INTRAVENOUS BOLUS
  59. RITUXIMAB [Suspect]
     Active Substance: RITUXIMAB
     Dosage: UNK
     Route: 050
  60. RITUXIMAB [Suspect]
     Active Substance: RITUXIMAB
     Dosage: UNK, INTRACARDIAC
  61. RITUXIMAB [Suspect]
     Active Substance: RITUXIMAB
     Dosage: 365 MG
  62. RITUXIMAB [Suspect]
     Active Substance: RITUXIMAB
     Dosage: UNK
  63. RITUXIMAB [Suspect]
     Active Substance: RITUXIMAB
     Dosage: UNK, INTRACARDIAC USE
  64. RITUXIMAB [Suspect]
     Active Substance: RITUXIMAB
     Dosage: UNK
     Route: 042
  65. RITUXIMAB [Suspect]
     Active Substance: RITUXIMAB
     Dosage: UNK
     Route: 042
  66. RITUXIMAB [Suspect]
     Active Substance: RITUXIMAB
     Dosage: UNK
  67. RITUXIMAB [Suspect]
     Active Substance: RITUXIMAB
     Dosage: UNK
     Route: 042
  68. RITUXIMAB [Suspect]
     Active Substance: RITUXIMAB
     Dosage: UNK
  69. RITUXIMAB [Suspect]
     Active Substance: RITUXIMAB
     Dosage: UNK
     Route: 042
  70. RITUXIMAB [Suspect]
     Active Substance: RITUXIMAB
     Dosage: UNK, INTRACARDIAC
  71. RITUXIMAB [Suspect]
     Active Substance: RITUXIMAB
     Dosage: UNK
     Route: 042
  72. RITUXIMAB [Suspect]
     Active Substance: RITUXIMAB
     Dosage: UNK, INTRAVESICAL
  73. RITUXIMAB [Suspect]
     Active Substance: RITUXIMAB
     Dosage: UNK
  74. TOPICORT [Suspect]
     Active Substance: DESOXIMETASONE
     Indication: Product used for unknown indication
     Dosage: 50 MG, QD
  75. TOPICORT [Suspect]
     Active Substance: DESOXIMETASONE
     Dosage: 2 DOSAGE FORM, QD
  76. TOPICORT [Suspect]
     Active Substance: DESOXIMETASONE
     Dosage: 1 MG, QD
  77. TOPICORT [Suspect]
     Active Substance: DESOXIMETASONE
     Dosage: 2 DOSAGE FORM, QD
  78. TOPICORT [Suspect]
     Active Substance: DESOXIMETASONE
     Dosage: 25 MG
  79. TOPICORT [Suspect]
     Active Substance: DESOXIMETASONE
     Dosage: 3 MG, QD
  80. TOPICORT [Suspect]
     Active Substance: DESOXIMETASONE
     Dosage: 3 MG, QD
  81. METHOTREXATE [Suspect]
     Active Substance: METHOTREXATE
     Indication: Psoriatic arthropathy
     Dosage: 20 MG, QD
     Route: 048
  82. METHOTREXATE [Suspect]
     Active Substance: METHOTREXATE
     Indication: Rheumatoid arthritis
     Dosage: UNK
  83. METHOTREXATE [Suspect]
     Active Substance: METHOTREXATE
     Dosage: UNK, QD
     Route: 048
  84. METHOTREXATE [Suspect]
     Active Substance: METHOTREXATE
     Dosage: 1 DOSAGE FORM, QD
     Route: 048
  85. METHOTREXATE [Suspect]
     Active Substance: METHOTREXATE
     Dosage: 25 MG
     Route: 058
  86. METHOTREXATE [Suspect]
     Active Substance: METHOTREXATE
     Dosage: 50 MG, QD
     Route: 048
  87. METHOTREXATE [Suspect]
     Active Substance: METHOTREXATE
     Dosage: 1 G, QD
     Route: 048
  88. METHOTREXATE [Suspect]
     Active Substance: METHOTREXATE
     Dosage: 25 MG, INTRA-ARTERIAL
  89. METHOTREXATE [Suspect]
     Active Substance: METHOTREXATE
     Dosage: 25 MG, ROA: SUBCUTANEOUS
     Route: 048
  90. METHOTREXATE [Suspect]
     Active Substance: METHOTREXATE
     Dosage: 20 MG, QW
     Route: 048
  91. METHOTREXATE [Suspect]
     Active Substance: METHOTREXATE
     Dosage: 25 MG
  92. METHOTREXATE [Suspect]
     Active Substance: METHOTREXATE
     Dosage: 15 MG, QD
  93. METHOTREXATE [Suspect]
     Active Substance: METHOTREXATE
     Dosage: UNK, INTRACARDIAC
  94. METHOTREXATE [Suspect]
     Active Substance: METHOTREXATE
     Dosage: UNK
  95. METHOTREXATE [Suspect]
     Active Substance: METHOTREXATE
     Dosage: 20 MG, QW
     Route: 048
  96. METHOTREXATE [Suspect]
     Active Substance: METHOTREXATE
     Dosage: 25 MG
     Route: 048
  97. METHOTREXATE [Suspect]
     Active Substance: METHOTREXATE
     Dosage: 25 MG
     Route: 048
  98. METHOTREXATE [Suspect]
     Active Substance: METHOTREXATE
     Dosage: 1 MG
     Route: 048
  99. METHOTREXATE [Suspect]
     Active Substance: METHOTREXATE
     Dosage: UNK
  100. METHOTREXATE [Suspect]
     Active Substance: METHOTREXATE
     Dosage: AURICULAR (OTIC)
  101. METHOTREXATE [Suspect]
     Active Substance: METHOTREXATE
     Dosage: 25 MG
     Route: 048
  102. METHOTREXATE [Suspect]
     Active Substance: METHOTREXATE
     Dosage: 25 MG
     Route: 013
  103. METHOTREXATE [Suspect]
     Active Substance: METHOTREXATE
     Dosage: 25 MG, QD, INTRAVENOUS BOLUS
  104. METHOTREXATE [Suspect]
     Active Substance: METHOTREXATE
     Dosage: 15 MG, QW
     Route: 048
  105. METHOTREXATE [Suspect]
     Active Substance: METHOTREXATE
     Dosage: UNK
  106. METHOTREXATE [Suspect]
     Active Substance: METHOTREXATE
     Dosage: 25 MG, QW
     Route: 048
  107. METHOTREXATE [Suspect]
     Active Substance: METHOTREXATE
     Dosage: 25 MG, QW, INTRA-ARTERIAL
  108. METHOTREXATE [Suspect]
     Active Substance: METHOTREXATE
     Dosage: 200 MG
     Route: 048
  109. METHOTREXATE [Suspect]
     Active Substance: METHOTREXATE
     Dosage: 2 G, QD
     Route: 048
  110. METHOTREXATE [Suspect]
     Active Substance: METHOTREXATE
     Dosage: UNK, INTRACARDIAC
  111. METHOTREXATE [Suspect]
     Active Substance: METHOTREXATE
     Dosage: 25 MG, QW
     Route: 048
  112. METHOTREXATE [Suspect]
     Active Substance: METHOTREXATE
     Dosage: UNK, ROA: SUBCUTANEOUS
  113. METHOTREXATE [Suspect]
     Active Substance: METHOTREXATE
     Dosage: 25 MG, QW, ROA: SUBCUTANEOUS
  114. METHOTREXATE [Suspect]
     Active Substance: METHOTREXATE
     Dosage: 2 DOSAGE FORM, QD
  115. METHOTREXATE [Suspect]
     Active Substance: METHOTREXATE
     Dosage: 1 DOSAGE FORM, QD
     Route: 048
  116. METHOTREXATE [Suspect]
     Active Substance: METHOTREXATE
     Dosage: 20 MG, QW
     Route: 013
  117. METHOTREXATE [Suspect]
     Active Substance: METHOTREXATE
     Dosage: 20 MG, QD
     Route: 048
  118. METHOTREXATE [Suspect]
     Active Substance: METHOTREXATE
     Dosage: 25 MG, QW
     Route: 013
  119. METHOTREXATE [Suspect]
     Active Substance: METHOTREXATE
     Dosage: 25 MG, QW
     Route: 048
  120. METHOTREXATE [Suspect]
     Active Substance: METHOTREXATE
     Dosage: 25 MG, QD
     Route: 048
  121. METHOTREXATE [Suspect]
     Active Substance: METHOTREXATE
     Dosage: 15 MG, QD
     Route: 048
  122. METHOTREXATE [Suspect]
     Active Substance: METHOTREXATE
     Dosage: 40 MG
     Route: 048
  123. METHOTREXATE [Suspect]
     Active Substance: METHOTREXATE
     Dosage: UNK
  124. METHOTREXATE [Suspect]
     Active Substance: METHOTREXATE
     Dosage: 25 MG, QD
     Route: 042
  125. METHOTREXATE [Suspect]
     Active Substance: METHOTREXATE
     Dosage: 25 MG
     Route: 013
  126. METHOTREXATE [Suspect]
     Active Substance: METHOTREXATE
     Route: 048
  127. METHOTREXATE [Suspect]
     Active Substance: METHOTREXATE
  128. METHOTREXATE [Suspect]
     Active Substance: METHOTREXATE
     Dosage: UNK, ROA: SUBCUTANEOUS
  129. METHOTREXATE [Suspect]
     Active Substance: METHOTREXATE
     Dosage: UNK
  130. METHOTREXATE [Suspect]
     Active Substance: METHOTREXATE
     Dosage: 20 MG, QW
     Route: 048
  131. METHOTREXATE [Suspect]
     Active Substance: METHOTREXATE
     Dosage: 2 G, QD
     Route: 048
  132. METHOTREXATE [Suspect]
     Active Substance: METHOTREXATE
     Dosage: UNK
  133. METHOTREXATE [Suspect]
     Active Substance: METHOTREXATE
     Dosage: UNK
  134. METHOTREXATE [Suspect]
     Active Substance: METHOTREXATE
     Dosage: UNK
  135. METHOTREXATE [Suspect]
     Active Substance: METHOTREXATE
     Dosage: ROA: SUBCUTANEOUS
  136. METHOTREXATE [Suspect]
     Active Substance: METHOTREXATE
     Dosage: UNK
  137. METHOTREXATE [Suspect]
     Active Substance: METHOTREXATE
     Dosage: AURICULAR USE
  138. METHOTREXATE [Suspect]
     Active Substance: METHOTREXATE
     Dosage: 20 MG
     Route: 048
  139. METHOTREXATE [Suspect]
     Active Substance: METHOTREXATE
     Dosage: UNK, ROA: SUBCUTANEOUS
  140. METHOTREXATE [Suspect]
     Active Substance: METHOTREXATE
     Dosage: 20 MG, QD
  141. METHOTREXATE [Suspect]
     Active Substance: METHOTREXATE
     Dosage: UNK (AURICULAR (OTIC))
  142. METHOTREXATE [Suspect]
     Active Substance: METHOTREXATE
     Dosage: AURICULAR
  143. METHOTREXATE [Suspect]
     Active Substance: METHOTREXATE
     Route: 048
  144. MYCOPHENOLATE MOFETIL [Suspect]
     Active Substance: MYCOPHENOLATE MOFETIL
     Indication: Product used for unknown indication
     Dosage: UNK
  145. MYCOPHENOLATE MOFETIL [Suspect]
     Active Substance: MYCOPHENOLATE MOFETIL
     Dosage: UNK
  146. MYCOPHENOLATE MOFETIL [Suspect]
     Active Substance: MYCOPHENOLATE MOFETIL
     Dosage: UNK
  147. ADALIMUMAB [Suspect]
     Active Substance: ADALIMUMAB
     Indication: Rheumatoid arthritis
     Dosage: UNK
  148. ADALIMUMAB [Suspect]
     Active Substance: ADALIMUMAB
     Dosage: UNK
  149. ADALIMUMAB [Suspect]
     Active Substance: ADALIMUMAB
     Dosage: UNK
  150. ADALIMUMAB [Suspect]
     Active Substance: ADALIMUMAB
     Dosage: UNK
  151. ADALIMUMAB [Suspect]
     Active Substance: ADALIMUMAB
     Dosage: UNK
  152. ADALIMUMAB [Suspect]
     Active Substance: ADALIMUMAB
     Dosage: UNK
  153. ADALIMUMAB [Suspect]
     Active Substance: ADALIMUMAB
     Dosage: 4 MG
     Route: 058
  154. ADALIMUMAB [Suspect]
     Active Substance: ADALIMUMAB
     Dosage: UNK
  155. ADALIMUMAB [Suspect]
     Active Substance: ADALIMUMAB
     Dosage: UNK
  156. ADALIMUMAB [Suspect]
     Active Substance: ADALIMUMAB
     Dosage: 40 MG
     Route: 058
  157. ADALIMUMAB [Suspect]
     Active Substance: ADALIMUMAB
     Dosage: SOLUTION SUBCUTANEOUS
     Route: 058
  158. ALENDRONIC ACID [Suspect]
     Active Substance: ALENDRONIC ACID
     Indication: Rheumatoid arthritis
     Dosage: UNK
     Route: 048
  159. ALENDRONIC ACID [Suspect]
     Active Substance: ALENDRONIC ACID
     Indication: Dyspepsia
     Dosage: UNK
  160. ALENDRONIC ACID [Suspect]
     Active Substance: ALENDRONIC ACID
     Dosage: UNK
  161. ALENDRONIC ACID [Suspect]
     Active Substance: ALENDRONIC ACID
     Dosage: UNK
  162. ALENDRONIC ACID [Suspect]
     Active Substance: ALENDRONIC ACID
     Dosage: UNK
  163. ALENDRONIC ACID [Suspect]
     Active Substance: ALENDRONIC ACID
     Dosage: 3 DOSAGE FORM
     Route: 005
  164. ALENDRONIC ACID [Suspect]
     Active Substance: ALENDRONIC ACID
     Dosage: UNK
     Route: 005
  165. ALENDRONIC ACID [Suspect]
     Active Substance: ALENDRONIC ACID
     Dosage: UNK
     Route: 005
  166. ALENDRONIC ACID [Suspect]
     Active Substance: ALENDRONIC ACID
     Dosage: 2 DOSAGE FORM
  167. NAPROXEN [Suspect]
     Active Substance: NAPROXEN
     Indication: Product used for unknown indication
     Dosage: 2 DOSAGE FORM, QD
  168. NAPROXEN [Suspect]
     Active Substance: NAPROXEN
     Dosage: 4 DOSAGE FORM, QD
  169. NAPROXEN [Suspect]
     Active Substance: NAPROXEN
     Dosage: 1 DOSAGE FORM, BID
  170. CETIRIZINE [Suspect]
     Active Substance: CETIRIZINE HYDROCHLORIDE
     Indication: Product used for unknown indication
     Dosage: 1 DOSAGE FORM, QD
  171. CETIRIZINE [Suspect]
     Active Substance: CETIRIZINE HYDROCHLORIDE
     Dosage: 3 DOSAGE FORM, QD
  172. CANDESARTAN [Suspect]
     Active Substance: CANDESARTAN
     Indication: Migraine
     Dosage: UNK
  173. CANDESARTAN [Suspect]
     Active Substance: CANDESARTAN
     Dosage: UNK
     Route: 048
  174. CANDESARTAN [Suspect]
     Active Substance: CANDESARTAN
     Dosage: UNK
     Route: 048
  175. CANDESARTAN [Suspect]
     Active Substance: CANDESARTAN
     Dosage: UNK
     Route: 048
  176. COSENTYX [Suspect]
     Active Substance: SECUKINUMAB
     Indication: Psoriatic arthropathy
     Dosage: UNK
  177. COSENTYX [Suspect]
     Active Substance: SECUKINUMAB
     Indication: Rheumatoid arthritis
     Dosage: UNK, UNKNOWN
  178. COSENTYX [Suspect]
     Active Substance: SECUKINUMAB
     Dosage: UNK
     Route: 005
  179. COSENTYX [Suspect]
     Active Substance: SECUKINUMAB
     Dosage: UNK, UNKNOWN
  180. COSENTYX [Suspect]
     Active Substance: SECUKINUMAB
     Dosage: UNK, UNKNOWN
  181. COSENTYX [Suspect]
     Active Substance: SECUKINUMAB
     Dosage: UNK, UNKNOWN
  182. COSENTYX [Suspect]
     Active Substance: SECUKINUMAB
     Dosage: UNK
  183. COSENTYX [Suspect]
     Active Substance: SECUKINUMAB
     Dosage: UNK, ENDOCERVICAL
  184. FOLIC ACID [Suspect]
     Active Substance: FOLIC ACID
     Indication: Rheumatoid arthritis
     Dosage: 25 MG
     Route: 048
  185. FOLIC ACID [Suspect]
     Active Substance: FOLIC ACID
     Dosage: 0.5 MG
  186. FOLIC ACID [Suspect]
     Active Substance: FOLIC ACID
     Dosage: 15 MG
  187. FOLIC ACID [Suspect]
     Active Substance: FOLIC ACID
     Dosage: 500 MG
     Route: 048
  188. FOLIC ACID [Suspect]
     Active Substance: FOLIC ACID
     Dosage: 15 MG
     Route: 048
  189. FOLIC ACID [Suspect]
     Active Substance: FOLIC ACID
     Dosage: 50 MG
  190. FOLIC ACID [Suspect]
     Active Substance: FOLIC ACID
     Dosage: 5 MG
  191. FOLIC ACID [Suspect]
     Active Substance: FOLIC ACID
     Dosage: 5 MG
  192. FOLIC ACID [Suspect]
     Active Substance: FOLIC ACID
     Dosage: 5 MG
     Route: 048
  193. FOLIC ACID [Suspect]
     Active Substance: FOLIC ACID
     Dosage: 5 MG, QD
  194. FOLIC ACID [Suspect]
     Active Substance: FOLIC ACID
     Dosage: 0.5 MG
     Route: 048
  195. FOLIC ACID [Suspect]
     Active Substance: FOLIC ACID
     Dosage: UNK
  196. FOLIC ACID [Suspect]
     Active Substance: FOLIC ACID
     Dosage: 1 G
  197. FOLIC ACID [Suspect]
     Active Substance: FOLIC ACID
     Dosage: 1 MG
     Route: 048
  198. FOLIC ACID [Suspect]
     Active Substance: FOLIC ACID
     Dosage: 1 MG
  199. FOLIC ACID [Suspect]
     Active Substance: FOLIC ACID
     Dosage: 1 MG
     Route: 048
  200. FOLIC ACID [Suspect]
     Active Substance: FOLIC ACID
     Dosage: UNK
  201. FOLIC ACID [Suspect]
     Active Substance: FOLIC ACID
     Route: 058
  202. FOLIC ACID [Suspect]
     Active Substance: FOLIC ACID
  203. FOLIC ACID [Suspect]
     Active Substance: FOLIC ACID
  204. FOLIC ACID [Suspect]
     Active Substance: FOLIC ACID
  205. FOLIC ACID [Suspect]
     Active Substance: FOLIC ACID
     Dosage: UNK
  206. FOLIC ACID [Suspect]
     Active Substance: FOLIC ACID
  207. FOLIC ACID [Suspect]
     Active Substance: FOLIC ACID
     Dosage: UNK
  208. FOLIC ACID [Suspect]
     Active Substance: FOLIC ACID
     Route: 048
  209. LAMICTAL [Suspect]
     Active Substance: LAMOTRIGINE
     Indication: Product used for unknown indication
     Dosage: 50 MG
     Route: 048
  210. QUETIAPINE [Suspect]
     Active Substance: QUETIAPINE
     Indication: Product used for unknown indication
     Dosage: UNK
     Route: 048
  211. QUETIAPINE [Suspect]
     Active Substance: QUETIAPINE
     Dosage: UNK
     Route: 048
  212. QUETIAPINE [Suspect]
     Active Substance: QUETIAPINE
     Dosage: UNK
  213. QUETIAPINE [Suspect]
     Active Substance: QUETIAPINE
     Dosage: UNK
  214. TRAZODONE [Suspect]
     Active Substance: TRAZODONE HYDROCHLORIDE
     Indication: Product used for unknown indication
     Dosage: 2 DOSAGE FORM, QD
  215. AIMOVIG [Suspect]
     Active Substance: ERENUMAB-AOOE
     Indication: Migraine
     Dosage: UNK
  216. AIMOVIG [Suspect]
     Active Substance: ERENUMAB-AOOE
     Dosage: UNK
  217. DOMPERIDONE\PANTOPRAZOLE SODIUM [Suspect]
     Active Substance: DOMPERIDONE\PANTOPRAZOLE SODIUM
     Indication: Product used for unknown indication
     Dosage: 1 DOSAGE FORM, QOD
  218. ERELZI [Suspect]
     Active Substance: ETANERCEPT-SZZS
     Indication: Rheumatoid arthritis
     Dosage: 5 MG, QW
  219. ERELZI [Suspect]
     Active Substance: ETANERCEPT-SZZS
     Dosage: UNK
  220. ERELZI [Suspect]
     Active Substance: ETANERCEPT-SZZS
     Dosage: UNK
  221. ERELZI [Suspect]
     Active Substance: ETANERCEPT-SZZS
     Dosage: UNK
  222. ERELZI [Suspect]
     Active Substance: ETANERCEPT-SZZS
     Dosage: UNK
  223. LEFLUNOMIDE [Suspect]
     Active Substance: LEFLUNOMIDE
     Indication: Rheumatoid arthritis
     Dosage: 20 MG
  224. LEFLUNOMIDE [Suspect]
     Active Substance: LEFLUNOMIDE
     Indication: Product used for unknown indication
     Dosage: 20 MG
     Route: 048
  225. LEFLUNOMIDE [Suspect]
     Active Substance: LEFLUNOMIDE
     Dosage: UNK, QD
  226. LEFLUNOMIDE [Suspect]
     Active Substance: LEFLUNOMIDE
     Dosage: 10 MG, QD
  227. LEFLUNOMIDE [Suspect]
     Active Substance: LEFLUNOMIDE
     Dosage: 20 MG
  228. LEFLUNOMIDE [Suspect]
     Active Substance: LEFLUNOMIDE
     Dosage: UNK
     Route: 048
  229. LEFLUNOMIDE [Suspect]
     Active Substance: LEFLUNOMIDE
     Dosage: UNK
     Route: 048
  230. LEFLUNOMIDE [Suspect]
     Active Substance: LEFLUNOMIDE
     Dosage: UNK
     Route: 048
  231. LEFLUNOMIDE [Suspect]
     Active Substance: LEFLUNOMIDE
     Dosage: UNK
  232. HYDROCORTISONE [Suspect]
     Active Substance: HYDROCORTISONE
     Indication: Rheumatoid arthritis
     Dosage: 25 MG
  233. DICLOFENAC SODIUM [Suspect]
     Active Substance: DICLOFENAC SODIUM
     Indication: Product used for unknown indication
     Route: 058
  234. DICLOFENAC SODIUM [Suspect]
     Active Substance: DICLOFENAC SODIUM
     Dosage: UNK
     Route: 031
  235. DICLOFENAC SODIUM [Suspect]
     Active Substance: DICLOFENAC SODIUM
     Dosage: UNK
  236. DICLOFENAC SODIUM [Suspect]
     Active Substance: DICLOFENAC SODIUM
  237. ALENDRONIC ACID [Suspect]
     Active Substance: ALENDRONIC ACID
     Indication: Rheumatoid arthritis
     Dosage: UNK
  238. ALENDRONIC ACID [Suspect]
     Active Substance: ALENDRONIC ACID
     Route: 048
  239. ALENDRONIC ACID [Suspect]
     Active Substance: ALENDRONIC ACID
     Dosage: UNK
  240. ALENDRONIC ACID [Suspect]
     Active Substance: ALENDRONIC ACID
     Dosage: UNK
     Route: 048
  241. ALENDRONIC ACID [Suspect]
     Active Substance: ALENDRONIC ACID
     Route: 048
  242. COSENTYX [Concomitant]
     Active Substance: SECUKINUMAB
     Indication: Product used for unknown indication
     Dosage: INJECTION
  243. DICLOFENAC [Suspect]
     Active Substance: DICLOFENAC
     Indication: Product used for unknown indication
     Dosage: UNK, BID (2 EVERY 1 DAY); UNKNOWN ROUTE
  244. PANTOPRAZOLE SODIUM [Suspect]
     Active Substance: PANTOPRAZOLE SODIUM
     Indication: Dyspepsia
     Route: 005
  245. PANTOPRAZOLE SODIUM [Suspect]
     Active Substance: PANTOPRAZOLE SODIUM
  246. ADALIMUMAB [Suspect]
     Active Substance: ADALIMUMAB
     Indication: Rheumatoid arthritis
     Dosage: DOSE FORM: SOLUTION SUBCUTANEOUS
  247. AIMOVIG [Suspect]
     Active Substance: ERENUMAB-AOOE
     Indication: Migraine
     Dosage: DOSE FORM: SOLUTION
  248. ALENDRONATE SODIUM [Suspect]
     Active Substance: ALENDRONATE SODIUM
     Indication: Rheumatoid arthritis
     Route: 048
  249. ALENDRONATE SODIUM [Suspect]
     Active Substance: ALENDRONATE SODIUM
  250. ALENDRONATE SODIUM [Suspect]
     Active Substance: ALENDRONATE SODIUM
  251. PANTOPRAZOLE SODIUM ANHYDROUS [Suspect]
     Active Substance: PANTOPRAZOLE SODIUM ANHYDROUS
     Indication: Dyspepsia
  252. PANTOPRAZOLE SODIUM ANHYDROUS [Suspect]
     Active Substance: PANTOPRAZOLE SODIUM ANHYDROUS
  253. PANTOPRAZOLE SODIUM ANHYDROUS [Suspect]
     Active Substance: PANTOPRAZOLE SODIUM ANHYDROUS
     Route: 005
  254. PANTOPRAZOLE SODIUM ANHYDROUS [Suspect]
     Active Substance: PANTOPRAZOLE SODIUM ANHYDROUS
     Route: 005
  255. QUETIAPINE FUMARATE [Suspect]
     Active Substance: QUETIAPINE FUMARATE
     Indication: Product used for unknown indication
  256. QUETIAPINE FUMARATE [Suspect]
     Active Substance: QUETIAPINE FUMARATE
     Indication: Product used for unknown indication

REACTIONS (29)
  - Type 2 diabetes mellitus [Fatal]
  - Diarrhoea [Fatal]
  - Duodenal ulcer perforation [Fatal]
  - Synovitis [Fatal]
  - Intentional product use issue [Fatal]
  - Fibromyalgia [Fatal]
  - Wheezing [Fatal]
  - Vomiting [Fatal]
  - Breast cancer stage III [Fatal]
  - General physical health deterioration [Fatal]
  - Helicobacter infection [Fatal]
  - Glossodynia [Fatal]
  - Hand deformity [Fatal]
  - Wound infection [Fatal]
  - Depression [Fatal]
  - Swelling [Fatal]
  - Joint range of motion decreased [Fatal]
  - Wound [Fatal]
  - Systemic lupus erythematosus [Fatal]
  - Drug intolerance [Fatal]
  - Live birth [Fatal]
  - Maternal exposure during pregnancy [Fatal]
  - Alopecia [Fatal]
  - Abdominal discomfort [Fatal]
  - Anti-cyclic citrullinated peptide antibody positive [Fatal]
  - Arthralgia [Fatal]
  - Blister [Fatal]
  - Pericarditis [Fatal]
  - Pemphigus [Fatal]
